FAERS Safety Report 20881051 (Version 2)
Quarter: 2023Q2

REPORT INFORMATION
  Report Type: Spontaneous
  Country: US (occurrence: US)
  Receive Date: 20220526
  Receipt Date: 20230516
  Transmission Date: 20230722
  Serious: No
  Sender: FDA-Public Use
  Company Number: US-RADIUS HEALTH INC.-2022US001912

PATIENT
  Sex: Female
  Weight: 41.723 kg

DRUGS (1)
  1. TYMLOS [Suspect]
     Active Substance: ABALOPARATIDE
     Indication: Senile osteoporosis
     Dosage: 80 MCG, DAILY
     Route: 058
     Dates: start: 202204

REACTIONS (5)
  - Hypertension [Unknown]
  - Myalgia [Recovered/Resolved]
  - Palpitations [Unknown]
  - Headache [Unknown]
  - Heart rate increased [Unknown]
